FAERS Safety Report 4696703-4 (Version None)
Quarter: 2005Q2

REPORT INFORMATION
  Report Type: 
  Country: None (occurrence: None)
  Receive Date: 20050622
  Receipt Date: 20050614
  Transmission Date: 20051028
  Serious: Yes (Other)
  Sender: FDA-Public Use
  Company Number: BW-BOEHRINGER INGELHEIM PHARMACEUTICALS, INC.-2005-BP-09920BP

PATIENT
  Sex: Female

DRUGS (3)
  1. VIRAMUNE [Suspect]
     Indication: HIV INFECTION
     Route: 048
     Dates: start: 20040726
  2. STAVUDINE [Suspect]
     Indication: VERTICAL INFECTION TRANSMISSION
     Route: 048
  3. LAMIVUDINE [Suspect]
     Indication: VERTICAL INFECTION TRANSMISSION
     Route: 048

REACTIONS (1)
  - LACTIC ACIDOSIS [None]
